FAERS Safety Report 4466274-6 (Version None)
Quarter: 2004Q4

REPORT INFORMATION
  Report Type: 
  Country: None (occurrence: None)
  Receive Date: 20041005
  Receipt Date: 20040924
  Transmission Date: 20050328
  Serious: Yes (Hospitalization)
  Sender: FDA-Public Use
  Company Number: FR-ABBOTT-04P-056-0274661-00

PATIENT
  Age: 82 Year
  Sex: Female

DRUGS (14)
  1. SECALIP [Suspect]
     Indication: HYPERCHOLESTEROLAEMIA
     Dosage: 1/2 OF 100 MG CAP
     Route: 048
  2. AGYRAX [Concomitant]
     Indication: DRUG USE FOR UNKNOWN INDICATION
  3. OXATOMIDE [Concomitant]
     Indication: DRUG USE FOR UNKNOWN INDICATION
     Dates: start: 20040802, end: 20040807
  4. HYDROXYZINE HYDROCHLORIDE [Concomitant]
     Indication: DRUG USE FOR UNKNOWN INDICATION
  5. SPIRONOLACTONE [Concomitant]
     Indication: DRUG USE FOR UNKNOWN INDICATION
  6. ACETORPHAN [Concomitant]
     Indication: DRUG USE FOR UNKNOWN INDICATION
  7. BION 3 [Concomitant]
     Indication: DRUG USE FOR UNKNOWN INDICATION
  8. FUMARIA EXTRACT [Concomitant]
     Indication: DRUG USE FOR UNKNOWN INDICATION
  9. ETHANOLAMINE ACETYLLEUCINATE [Concomitant]
     Indication: DRUG USE FOR UNKNOWN INDICATION
  10. PREDNISONE [Concomitant]
     Indication: DRUG USE FOR UNKNOWN INDICATION
  11. DOMPERIDONE [Concomitant]
     Indication: DRUG USE FOR UNKNOWN INDICATION
  12. NIFUROXAZIDE [Concomitant]
     Indication: DRUG USE FOR UNKNOWN INDICATION
  13. METOPIMAZINE [Concomitant]
     Indication: DRUG USE FOR UNKNOWN INDICATION
  14. IBUPROFEN [Concomitant]
     Indication: DRUG USE FOR UNKNOWN INDICATION

REACTIONS (9)
  - ABDOMINAL PAIN UPPER [None]
  - ANOREXIA [None]
  - BLOOD BILIRUBIN INCREASED [None]
  - CHOLESTASIS [None]
  - HYPERCALCAEMIA [None]
  - HYPOCALCAEMIA [None]
  - HYPOKALAEMIA [None]
  - JAUNDICE [None]
  - NAUSEA [None]
